FAERS Safety Report 11182703 (Version 8)
Quarter: 2017Q4

REPORT INFORMATION
  Report Type: Spontaneous
  Country: US (occurrence: US)
  Receive Date: 20150611
  Receipt Date: 20171228
  Transmission Date: 20180320
  Serious: Yes (Disabling, Other)
  Sender: FDA-Public Use
  Company Number: US-PFIZER INC-2015158579

PATIENT
  Age: 62 Year
  Sex: Female
  Weight: 131.5 kg

DRUGS (42)
  1. ASPIRIN. [Concomitant]
     Active Substance: ASPIRIN
     Dosage: 81 MG, DAILY
     Route: 048
     Dates: start: 2015
  2. VITAMIN D3 [Concomitant]
     Active Substance: CHOLECALCIFEROL
     Dosage: 2000 MG, DAILY
     Route: 048
     Dates: start: 2015
  3. CYMBALTA [Concomitant]
     Active Substance: DULOXETINE HYDROCHLORIDE
     Indication: NEUROPATHY PERIPHERAL
     Dosage: 5 MG, 2X/DAY
  4. METFORMIN [Concomitant]
     Active Substance: METFORMIN HYDROCHLORIDE
     Indication: DIABETES MELLITUS
     Dosage: 100 MG, 2X/DAY
     Route: 048
     Dates: start: 1996
  5. PREMARIN [Concomitant]
     Active Substance: ESTROGENS, CONJUGATED
     Dosage: 0.5 G, UNK (3XQWK  (3 TIMES WEEKLY)X 90 DAYS)
     Route: 067
     Dates: start: 2000
  6. HYDROCODONE [Concomitant]
     Active Substance: HYDROCODONE
     Indication: PAIN
     Dosage: 10/325MG, (EVERY 6 HOURS) AS NEEDED
     Route: 048
     Dates: start: 1994
  7. VICTOZA [Concomitant]
     Active Substance: LIRAGLUTIDE
     Indication: DIABETES MELLITUS
     Dosage: 1.8 MG, 1X/DAY (QHS) (ONE TIME AT NIGHT)
     Route: 058
     Dates: start: 2014
  8. TRICOR [Concomitant]
     Active Substance: FENOFIBRATE
     Dosage: 160 MG, 1X/DAY (QAM)
     Route: 048
  9. CYMBALTA [Concomitant]
     Active Substance: DULOXETINE HYDROCHLORIDE
     Indication: PAIN
     Dosage: 30 MG, 2X/DAY (BID)
     Route: 048
     Dates: start: 2009
  10. ATENOLOL. [Concomitant]
     Active Substance: ATENOLOL
     Dosage: 50 MG, 1X/DAY (QHS)
     Route: 048
     Dates: start: 2015
  11. CYANOCOBALAMIN. [Concomitant]
     Active Substance: CYANOCOBALAMIN
     Dosage: 2000 MG, MONTHLY
     Route: 030
     Dates: start: 2006
  12. MYCOLOG II [Concomitant]
     Dosage: 0.1% TO AFFECTED AREAS, AS NEEDED
     Dates: start: 2009
  13. KLOR-CON [Concomitant]
     Active Substance: POTASSIUM CHLORIDE
     Dosage: 20 MEQ, 2X/DAY (BID)
     Route: 048
     Dates: start: 2000
  14. LANTUS [Concomitant]
     Active Substance: INSULIN GLARGINE
     Dosage: 45 IU, 2X/DAY (BY INJECTION)
     Dates: start: 2006
  15. HYDROCODONE [Concomitant]
     Active Substance: HYDROCODONE
     Indication: PAIN IN EXTREMITY
     Dosage: (10/325 SOMETIMES TWICE A DAY), AS NEEDED
  16. NOVOLOG [Concomitant]
     Active Substance: INSULIN ASPART
     Dosage: UNK (30-40 UNITS), (BEFORE MEALS) AS NEEDED
     Route: 058
  17. ZOVIRAX [Concomitant]
     Active Substance: ACYCLOVIR
     Dosage: 0.5 G,(3X/DAY ON AFFECTED AREAS) AS NEEDED (TID PRN)
     Dates: start: 2009
  18. NORMAL SALINE [Concomitant]
     Active Substance: SODIUM CHLORIDE
     Dosage: 3 ML, (NORMAL SALINE IN(3 ML,  DEY VIALS) VIA NEBULIZER, EVERY 4 HOURS) AS NEEDED
     Dates: start: 2000
  19. HYDROCHLOROTHIAZIDE. [Concomitant]
     Active Substance: HYDROCHLOROTHIAZIDE
     Dosage: 25 MG, DAILY
     Route: 048
     Dates: start: 2000
  20. LANTUS [Concomitant]
     Active Substance: INSULIN GLARGINE
     Indication: DIABETES MELLITUS
     Dosage: UP TO 80 UNITS, 2X/DAY
     Route: 058
     Dates: start: 2000
  21. METFORMIN [Concomitant]
     Active Substance: METFORMIN HYDROCHLORIDE
     Dosage: 1000 MG, 2X/DAY (1000 MG PRESSED OBLONG TABLET TWICE A DAY BY MOUTH)
     Route: 048
     Dates: start: 1996
  22. MAGNESIUM [Concomitant]
     Active Substance: MAGNESIUM
     Dosage: 250 MG, 1X/DAY (QAM)
     Route: 048
  23. ALBUTEROL SULFATE. [Concomitant]
     Active Substance: ALBUTEROL SULFATE
     Dosage: 0.83%, (EVERY 4 HOURS) AS NEEDED (VIA NEBULIZER Q4 PRN)
     Dates: start: 2000
  24. LYRICA [Suspect]
     Active Substance: PREGABALIN
     Indication: PAIN IN EXTREMITY
  25. LOSARTAN. [Concomitant]
     Active Substance: LOSARTAN
     Dosage: 50 MG, 1X/DAY (EVERY NIGHT )
     Route: 048
     Dates: start: 2009
  26. MAGNESIUM [Concomitant]
     Active Substance: MAGNESIUM
     Dosage: 500 MG, 1X/DAY
     Route: 048
     Dates: start: 2000
  27. AMBIEN [Concomitant]
     Active Substance: ZOLPIDEM TARTRATE
     Dosage: 10 MG, (1X/DA AT EVERY NIGHTY), AS NEEDED (QHS)
     Route: 048
     Dates: start: 1990
  28. ATROVENT [Concomitant]
     Active Substance: IPRATROPIUM BROMIDE
     Dosage: 0.2%,(EVER 4 HOURS) AS NEEDED (NEBULIZER Q4 PRN)
     Dates: start: 2000
  29. VITAMIN D3 [Concomitant]
     Active Substance: CHOLECALCIFEROL
     Dosage: 1000 MG, 1X/DAY (QAM)
     Route: 048
  30. NOVOLOG [Concomitant]
     Active Substance: INSULIN ASPART
     Dosage: UNK, AS NEEDED (30-40 UNITS AC PRN)
  31. VITAMIN B12 [Concomitant]
     Active Substance: CYANOCOBALAMIN
     Dosage: 2000 IU, UNK (QMA)
     Route: 058
     Dates: start: 2010
  32. LYRICA [Suspect]
     Active Substance: PREGABALIN
     Indication: NEUROPATHY PERIPHERAL
     Dosage: 150 MG, 2X/DAY (BID)
     Route: 048
     Dates: start: 1996
  33. HYDROCHLOROTHIAZIDE. [Concomitant]
     Active Substance: HYDROCHLOROTHIAZIDE
     Dosage: 25 MG, 1X/DAY (QAM)
     Route: 048
  34. TRICOR [Concomitant]
     Active Substance: FENOFIBRATE
     Dosage: 145 MG, DAILY
     Route: 048
     Dates: start: 2012
  35. CYMBALTA [Concomitant]
     Active Substance: DULOXETINE HYDROCHLORIDE
     Dosage: 30 MG, 2X/DAY
     Route: 048
     Dates: start: 2001
  36. VITAMIN C [Concomitant]
     Active Substance: ASCORBIC ACID
     Dosage: 1000 MG, 2X/DAY (BID)
     Route: 048
     Dates: start: 2005
  37. HYDROCODONE [Concomitant]
     Active Substance: HYDROCODONE
     Dosage: UNK, 4X/DAY (10 MG/325 MG TABLET EVERY 6 HOURS BY MOUTH; SHE MAY TAKE 1 EVERY 7 OR 8 WEEKS)
     Route: 048
     Dates: start: 2015
  38. COMBIVENT RESPIMAT [Concomitant]
     Active Substance: ALBUTEROL SULFATE\IPRATROPIUM BROMIDE
     Dosage: 2 DF, AS NEEDED (IPRATROPIUM BROMIDE: 20MCG, SALBUTAMOL SULFATE: 100MCG; Q4 PRN)
     Dates: start: 2013
  39. ADVAIR DISKUS [Concomitant]
     Active Substance: FLUTICASONE PROPIONATE\SALMETEROL XINAFOATE
     Dosage: 250/50MCG (1PUFF , EVERY 12 HOURS) AS NEEDED
     Dates: start: 2006
  40. LOSARTAN. [Concomitant]
     Active Substance: LOSARTAN
     Dosage: 50 MG, 1X/DAY (QAM)
     Route: 048
  41. PREVACID [Concomitant]
     Active Substance: LANSOPRAZOLE
     Dosage: 30 MG, 1X/DAY (EVERY NIGHT)
     Route: 048
     Dates: start: 1997
  42. HYDROCODONE [Concomitant]
     Active Substance: HYDROCODONE
     Dosage: UNK (10/325 PO Q6 PRN)
     Route: 048

REACTIONS (8)
  - Decreased activity [Unknown]
  - Drug prescribing error [Unknown]
  - Diabetes mellitus [Unknown]
  - Drug dependence [Unknown]
  - Gait inability [Unknown]
  - Tendon rupture [Unknown]
  - Pain in extremity [Unknown]
  - Rebound effect [Unknown]
